FAERS Safety Report 19142898 (Version 1)
Quarter: 2021Q2

REPORT INFORMATION
  Report Type: Spontaneous
  Country: GB (occurrence: GB)
  Receive Date: 20210416
  Receipt Date: 20210416
  Transmission Date: 20210717
  Serious: Yes (Disabling)
  Sender: FDA-Public Use
  Company Number: GB-SUN PHARMACEUTICAL INDUSTRIES LTD-2021RR-291671

PATIENT
  Age: 35 Year
  Sex: Male
  Weight: 54.88 kg

DRUGS (2)
  1. OFLOXACIN. [Suspect]
     Active Substance: OFLOXACIN
     Indication: ILL-DEFINED DISORDER
     Dosage: 400MG 1 A DAY, VISITED HOSPITAL CONCERNED HAVEING REACTION , SENT HOME WITH CIPRFLOXACIN 500MG 2DAY
     Route: 048
     Dates: start: 20210309, end: 20210330
  2. CIPROFLOXACIN. [Suspect]
     Active Substance: CIPROFLOXACIN
     Indication: ILL-DEFINED DISORDER
     Dosage: 500MG, TWICE A DAY
     Route: 048
     Dates: start: 20210329, end: 20210331

REACTIONS (2)
  - Adverse drug reaction [Not Recovered/Not Resolved]
  - Medication error [Unknown]

NARRATIVE: CASE EVENT DATE: 20210310
